FAERS Safety Report 14324034 (Version 2)
Quarter: 2018Q1

REPORT INFORMATION
  Report Type: Spontaneous
  Country: US (occurrence: US)
  Receive Date: 20171226
  Receipt Date: 20180117
  Transmission Date: 20180509
  Serious: Yes (Hospitalization, Other)
  Sender: FDA-Public Use
  Company Number: US-B.I. PHARMACEUTICALS,INC./RIDGEFIELD-2017-BI-067784

PATIENT
  Age: 83 Year
  Sex: Female

DRUGS (11)
  1. TRADJENTA [Suspect]
     Active Substance: LINAGLIPTIN
     Indication: TYPE 2 DIABETES MELLITUS
     Route: 048
     Dates: start: 2009
  2. PREDNISONE. [Concomitant]
     Active Substance: PREDNISONE
     Indication: MYOSITIS
     Dosage: ONCE DAILY;  FORM STRENGTH: 1MG; FORMULATION: TABLET
     Route: 048
     Dates: start: 201709
  3. CHLORTHALIDONE. [Concomitant]
     Active Substance: CHLORTHALIDONE
     Indication: FLUID RETENTION
     Dosage: 1/2 TABLET ONCE DAILY;  FORM STRENGTH: 25MG; FORMULATION: TABLET
     Route: 048
  4. ASPIRIN. [Concomitant]
     Active Substance: ASPIRIN
     Indication: CARDIOVASCULAR EVENT PROPHYLAXIS
     Dosage: ONCE DAILY;  FORM STRENGTH: 81MG; FORMULATION: TABLET
     Route: 048
  5. PRESERVISION [Concomitant]
     Active Substance: MINERALS\VITAMINS
     Indication: SUPPLEMENTATION THERAPY
     Dosage: ONCE DAILY;  FORMULATION: TABLET;
     Route: 048
  6. CENTRUM SILVER [Concomitant]
     Active Substance: MINERALS\VITAMINS
     Indication: SUPPLEMENTATION THERAPY
     Dosage: ONCE DAILY;  FORMULATION: CAPLET;
     Route: 048
  7. OMEPRAZOLE. [Concomitant]
     Active Substance: OMEPRAZOLE
     Indication: DYSPEPSIA
     Dosage: 1/2 TABLET A DAY;  FORM STRENGTH: 20MG; FORMULATION: TABLET
     Route: 048
  8. GLIMETIRIDE [Concomitant]
     Indication: TYPE 2 DIABETES MELLITUS
     Dosage: BID;  FORM STRENGTH: 2MG; FORMULATION: TABLET
     Route: 048
  9. VITAMIN B3 [Concomitant]
     Active Substance: NIACIN
     Indication: SUPPLEMENTATION THERAPY
     Dosage: ONCE DAILY;  FORMULATION: TABLET;
     Route: 048
  10. ATENOLOL. [Concomitant]
     Active Substance: ATENOLOL
     Indication: HYPERTENSION
     Dosage: BID;  FORM STRENGTH: 50MG; FORMULATION: TABLET
     Route: 048
  11. PLAVIX [Concomitant]
     Active Substance: CLOPIDOGREL BISULFATE
     Indication: ANTICOAGULANT THERAPY
     Dosage: ONCE DAILY;  FORM STRENGTH: 75MG; FORMULATION: TABLET
     Route: 048
     Dates: start: 201705

REACTIONS (3)
  - Arterial occlusive disease [Recovered/Resolved]
  - Aneurysm [Recovered/Resolved]
  - Arterial occlusive disease [Recovered/Resolved]

NARRATIVE: CASE EVENT DATE: 201705
